FAERS Safety Report 21790840 (Version 1)
Quarter: 2022Q4

REPORT INFORMATION
  Report Type: Report from Study
  Country: US (occurrence: US)
  Receive Date: 20221228
  Receipt Date: 20221228
  Transmission Date: 20230113
  Serious: No
  Sender: FDA-Public Use
  Company Number: US-CLOVIS ONCOLOGY-CLO-2022-001214

PATIENT
  Age: 63 Year
  Sex: Male

DRUGS (2)
  1. RUBRACA [Suspect]
     Active Substance: RUCAPARIB CAMSYLATE
     Indication: Prostate cancer
     Dosage: 600 MILLIGRAM, BID
     Route: 048
     Dates: start: 20221027, end: 20221101
  2. RUBRACA [Suspect]
     Active Substance: RUCAPARIB CAMSYLATE
     Dosage: UNK

REACTIONS (7)
  - Bone pain [Unknown]
  - Adverse event [Not Recovered/Not Resolved]
  - Faeces discoloured [Recovered/Resolved]
  - Weight decreased [Unknown]
  - Constipation [Recovering/Resolving]
  - Abdominal distension [Not Recovered/Not Resolved]
  - Vomiting [Not Recovered/Not Resolved]

NARRATIVE: CASE EVENT DATE: 20221029
